FAERS Safety Report 6804074-X (Version None)
Quarter: 2010Q2

REPORT INFORMATION
  Report Type: 
  Country: None (occurrence: None)
  Receive Date: 20100628
  Receipt Date: 20060919
  Transmission Date: 20101027
  Serious: Yes (Other)
  Sender: FDA-Public Use
  Company Number: US-PFIZER INC-2006113269

PATIENT
  Sex: Female
  Weight: 88.5 kg

DRUGS (2)
  1. RELPAX [Suspect]
     Indication: MIGRAINE WITHOUT AURA
     Route: 048
     Dates: start: 20060918, end: 20060919
  2. ADDERALL 10 [Concomitant]
     Route: 048

REACTIONS (2)
  - EPISTAXIS [None]
  - HEADACHE [None]
